FAERS Safety Report 7582006-7 (Version None)
Quarter: 2011Q2

REPORT INFORMATION
  Report Type: 
  Country: None (occurrence: None)
  Receive Date: 20110630
  Receipt Date: 20110621
  Transmission Date: 20111010
  Serious: No
  Sender: FDA-Public Use
  Company Number: US-BIOGENIDEC-2010BI020067

PATIENT
  Age: 55 Year
  Sex: Male

DRUGS (1)
  1. TYSABRI [Suspect]
     Indication: MULTIPLE SCLEROSIS
     Route: 042
     Dates: start: 20091124

REACTIONS (11)
  - STRESS [None]
  - MOOD SWINGS [None]
  - COGNITIVE DISORDER [None]
  - ANXIETY [None]
  - DEPRESSION [None]
  - ASTHENIA [None]
  - MEMORY IMPAIRMENT [None]
  - VISUAL IMPAIRMENT [None]
  - GLUCOSE TOLERANCE IMPAIRED [None]
  - INSOMNIA [None]
  - FEELING ABNORMAL [None]
